FAERS Safety Report 18479953 (Version 1)
Quarter: 2020Q4

REPORT INFORMATION
  Report Type: Spontaneous
  Country: DE (occurrence: DE)
  Receive Date: 20201109
  Receipt Date: 20201109
  Transmission Date: 20210114
  Serious: Yes (Death, Other)
  Sender: FDA-Public Use
  Company Number: DE-MICRO LABS LIMITED-ML2020-03311

PATIENT
  Age: 32 Year
  Sex: Male

DRUGS (8)
  1. MDA (3,4-METHYLENEDIOXYAMPHETAMINE) [Suspect]
     Active Substance: TENAMFETAMINE
  2. METHAMPHETAMINE [Suspect]
     Active Substance: METHAMPHETAMINE
  3. THC (TETRAHYDROCANNABINOL) HOMOLOG [Suspect]
     Active Substance: CANNABINOID, SYNTHETIC (NOS)
  4. PMMA (PARAMETHOXYMETHAMPHETAMINE) [Suspect]
     Active Substance: 4-METHOXYMETHAMPHETAMINE
  5. MDMA (3,4-METHYLENEDIOXY-METHAMPHETAMINE) [Suspect]
     Active Substance: MIDOMAFETAMINE
  6. CAFFEINE CITRATE. [Suspect]
     Active Substance: CAFFEINE CITRATE
  7. AMPHETAMINE [Suspect]
     Active Substance: AMPHETAMINE
  8. BENZOYLECGONINE [Suspect]
     Active Substance: BENZOYLECGONINE

REACTIONS (2)
  - Toxicity to various agents [Unknown]
  - Drug abuse [Unknown]
